FAERS Safety Report 6236511-6 (Version None)
Quarter: 2009Q2

REPORT INFORMATION
  Report Type: 
  Country: None (occurrence: None)
  Receive Date: 20090619
  Receipt Date: 20090618
  Transmission Date: 20091009
  Serious: Yes (Hospitalization)
  Sender: FDA-Public Use
  Company Number: A0787136A

PATIENT
  Sex: Female

DRUGS (14)
  1. ADVAIR HFA [Suspect]
     Indication: ASTHMA
     Dosage: 1PUFF TWICE PER DAY
     Route: 055
  2. LANOXIN [Concomitant]
  3. ALBUTEROL [Concomitant]
  4. SINGULAIR [Concomitant]
  5. KDUR [Concomitant]
  6. LASIX [Concomitant]
  7. LORTAB [Concomitant]
  8. LORTAB [Concomitant]
  9. ZAROXOLYN [Concomitant]
  10. NEURONTIN [Concomitant]
  11. RHINOCORT [Concomitant]
  12. CPAP [Concomitant]
  13. SEREVENT [Concomitant]
  14. ATROVENT [Concomitant]

REACTIONS (2)
  - ASTHMA [None]
  - RESPIRATORY FAILURE [None]
